FAERS Safety Report 15537945 (Version 3)
Quarter: 2018Q4

REPORT INFORMATION
  Report Type: Report from Study
  Country: NL (occurrence: NL)
  Receive Date: 20181022
  Receipt Date: 20181122
  Transmission Date: 20190205
  Serious: Yes (Hospitalization)
  Sender: FDA-Public Use
  Company Number: NL-TOLMAR, INC.-2018NL010370

PATIENT

DRUGS (2)
  1. ELIGARD [Suspect]
     Active Substance: LEUPROLIDE ACETATE
     Indication: PROSTATE CANCER
     Dosage: 45 MG,EVERY 6 MONTHS
     Route: 058
     Dates: start: 20170414
  2. ELIGARD [Suspect]
     Active Substance: LEUPROLIDE ACETATE
     Dosage: 45 MG,EVERY 6 MONTHS
     Route: 058
     Dates: start: 20180413

REACTIONS (3)
  - Bladder pain [Unknown]
  - Sepsis [Not Recovered/Not Resolved]
  - Urinary tract infection [Unknown]
